FAERS Safety Report 6174276-7 (Version None)
Quarter: 2009Q2

REPORT INFORMATION
  Report Type: 
  Country: None (occurrence: None)
  Receive Date: 20090430
  Receipt Date: 20080425
  Transmission Date: 20091009
  Serious: No
  Sender: FDA-Public Use
  Company Number: US-ASTRAZENECA-2008UW08615

PATIENT
  Age: 71 Year
  Sex: Female
  Weight: 56.7 kg

DRUGS (11)
  1. NEXIUM [Suspect]
     Indication: GASTRIC ULCER
     Route: 048
     Dates: start: 20080424
  2. NEXIUM [Suspect]
     Indication: GASTROOESOPHAGEAL REFLUX DISEASE
     Route: 048
     Dates: start: 20080424
  3. NEXIUM [Suspect]
     Indication: FLATULENCE
     Route: 048
     Dates: start: 20080424
  4. PEPCID [Concomitant]
  5. REGLAN [Concomitant]
  6. ZOCOR [Concomitant]
  7. EPIDRINE [Concomitant]
  8. DIOVAN [Concomitant]
  9. CARDIA [Concomitant]
  10. SERZONE [Concomitant]
  11. XANAX [Concomitant]

REACTIONS (2)
  - ABNORMAL DREAMS [None]
  - DISORIENTATION [None]
